FAERS Safety Report 6538591-7 (Version None)
Quarter: 2010Q1

REPORT INFORMATION
  Report Type: 
  Country: None (occurrence: None)
  Receive Date: 20100113
  Receipt Date: 20100113
  Transmission Date: 20100710
  Serious: Yes (Life-Threatening, Hospitalization)
  Sender: FDA-Public Use
  Company Number: None

PATIENT
  Age: 74 Year
  Sex: Male
  Weight: 112.4921 kg

DRUGS (1)
  1. WARFARIN SODIUM [Suspect]
     Indication: DRUG INEFFECTIVE
     Dosage: 10 MG. DAILY MOUTH
     Route: 048
     Dates: start: 20080101, end: 20090501

REACTIONS (8)
  - CHEST PAIN [None]
  - INTERNATIONAL NORMALISED RATIO DECREASED [None]
  - PALPITATIONS [None]
  - PERIPHERAL COLDNESS [None]
  - PRODUCT CONTAMINATION [None]
  - PRODUCT LABEL ISSUE [None]
  - PRODUCT MEASURED POTENCY ISSUE [None]
  - THROMBOSIS [None]
